FAERS Safety Report 4329638-7 (Version None)
Quarter: 2004Q2

REPORT INFORMATION
  Report Type: 
  Country: None (occurrence: None)
  Receive Date: 20040401
  Receipt Date: 20040326
  Transmission Date: 20050107
  Serious: Yes (Other)
  Sender: FDA-Public Use
  Company Number: PHRM2004FR01372

PATIENT
  Age: 25 Year
  Sex: Female

DRUGS (2)
  1. TRILEPTAL [Suspect]
     Indication: SCHIZOPHRENIA
     Dosage: 150 MG, TID
     Route: 048
  2. RISPERDAL [Concomitant]
     Indication: SCHIZOPHRENIA
     Dosage: UNK, UNK
     Route: 048

REACTIONS (1)
  - HYPOTHYROIDISM [None]
